FAERS Safety Report 13126510 (Version 4)
Quarter: 2017Q2

REPORT INFORMATION
  Report Type: Spontaneous
  Country: US (occurrence: US)
  Receive Date: 20170118
  Receipt Date: 20170509
  Transmission Date: 20170830
  Serious: Yes (Hospitalization, Other)
  Sender: FDA-Public Use
  Company Number: US-CELGENEUS-USA-2017013488

PATIENT
  Age: 45 Year
  Sex: Female

DRUGS (18)
  1. BLOOD [Concomitant]
     Active Substance: WHOLE BLOOD
     Route: 041
     Dates: start: 20141202, end: 20141202
  2. BLOOD [Concomitant]
     Active Substance: WHOLE BLOOD
     Route: 041
     Dates: start: 20141101, end: 20141101
  3. BLOOD [Concomitant]
     Active Substance: WHOLE BLOOD
     Route: 041
     Dates: start: 20150221, end: 20150221
  4. FLONASE ALLERGY RELIEF [Concomitant]
     Active Substance: FLUTICASONE PROPIONATE
     Indication: PRODUCT USED FOR UNKNOWN INDICATION
     Dosage: 50MCG, 2 SPRAYS EACH NOSTRIL
     Route: 045
  5. BLOOD [Concomitant]
     Active Substance: WHOLE BLOOD
     Indication: PRODUCT USED FOR UNKNOWN INDICATION
     Route: 041
     Dates: start: 20120512, end: 20120512
  6. BLOOD [Concomitant]
     Active Substance: WHOLE BLOOD
     Route: 041
     Dates: start: 20150321, end: 20150321
  7. REVLIMID [Suspect]
     Active Substance: LENALIDOMIDE
     Indication: MYELODYSPLASTIC SYNDROME
  8. BLOOD [Concomitant]
     Active Substance: WHOLE BLOOD
     Route: 041
     Dates: start: 20120818, end: 20120818
  9. BLOOD [Concomitant]
     Active Substance: WHOLE BLOOD
     Route: 041
     Dates: start: 20150102, end: 20150102
  10. ACETAMINOPHEN. [Concomitant]
     Active Substance: ACETAMINOPHEN
     Indication: PRODUCT USED FOR UNKNOWN INDICATION
     Dosage: 1000 MILLIGRAM
     Route: 048
  11. ASPIRIN. [Concomitant]
     Active Substance: ASPIRIN
     Indication: PRODUCT USED FOR UNKNOWN INDICATION
     Dosage: 325 MILLIGRAM
     Route: 048
  12. BLOOD [Concomitant]
     Active Substance: WHOLE BLOOD
     Route: 041
     Dates: start: 20120623, end: 20120623
  13. BLOOD [Concomitant]
     Active Substance: WHOLE BLOOD
     Route: 041
     Dates: start: 20140814, end: 20140814
  14. BLOOD [Concomitant]
     Active Substance: WHOLE BLOOD
     Route: 041
     Dates: start: 20150130, end: 20150130
  15. ONDANSETRON [Concomitant]
     Active Substance: ONDANSETRON
     Indication: NAUSEA
     Dosage: 24 MILLIGRAM
     Route: 048
  16. REVLIMID [Suspect]
     Active Substance: LENALIDOMIDE
     Indication: MYELODYSPLASTIC SYNDROME
     Dosage: 10 MILLIGRAM
     Route: 048
     Dates: start: 20150207
  17. BLOOD [Concomitant]
     Active Substance: WHOLE BLOOD
     Route: 041
     Dates: start: 20140530, end: 20140530
  18. BLOOD [Concomitant]
     Active Substance: WHOLE BLOOD
     Route: 041
     Dates: start: 20140918, end: 20140918

REACTIONS (2)
  - White blood cell count decreased [Unknown]
  - Full blood count decreased [Recovering/Resolving]

NARRATIVE: CASE EVENT DATE: 20160102
